FAERS Safety Report 4554637-X (Version None)
Quarter: 2005Q1

REPORT INFORMATION
  Report Type: 
  Country: None (occurrence: None)
  Receive Date: 20041230
  Receipt Date: 20041005
  Transmission Date: 20050727
  Serious: No
  Sender: FDA-Public Use
  Company Number: PC-04-004

PATIENT
  Age: 56 Year
  Sex: Male
  Weight: 170.0989 kg

DRUGS (1)
  1. IMAGENT [Suspect]
     Dosage: 1.3 ML IV
     Route: 042
     Dates: start: 20041005

REACTIONS (1)
  - HYPERSENSITIVITY [None]
